FAERS Safety Report 15053981 (Version 1)
Quarter: 2018Q2

REPORT INFORMATION
  Report Type: Spontaneous
  Country: US (occurrence: US)
  Receive Date: 20180622
  Receipt Date: 20180622
  Transmission Date: 20180711
  Serious: Yes (Disabling, Other)
  Sender: FDA-Public Use
  Company Number: US-OTSUKA-2018_015855

PATIENT
  Sex: Male

DRUGS (3)
  1. ABILIFY [Suspect]
     Active Substance: ARIPIPRAZOLE
     Indication: BIPOLAR DISORDER
     Dosage: 2.5 MG, QD
     Route: 065
     Dates: start: 201201
  2. ABILIFY [Suspect]
     Active Substance: ARIPIPRAZOLE
     Dosage: 7.5 MG, QD
     Route: 065
     Dates: end: 201606
  3. ABILIFY [Suspect]
     Active Substance: ARIPIPRAZOLE
     Indication: MAJOR DEPRESSION
     Dosage: 5 MG, QD
     Route: 065

REACTIONS (16)
  - Anhedonia [Unknown]
  - Personal relationship issue [Unknown]
  - Mental impairment [Unknown]
  - Eating disorder [Recovered/Resolved]
  - Injury [Unknown]
  - Compulsive shopping [Recovered/Resolved]
  - Suicidal ideation [Recovered/Resolved]
  - Emotional distress [Unknown]
  - Gambling disorder [Recovered/Resolved]
  - Social problem [Unknown]
  - Economic problem [Unknown]
  - Disability [Unknown]
  - Suicide attempt [Recovered/Resolved]
  - Fear [Unknown]
  - Pain [Unknown]
  - Anxiety [Unknown]

NARRATIVE: CASE EVENT DATE: 2012
